FAERS Safety Report 11082121 (Version 1)
Quarter: 2015Q2

REPORT INFORMATION
  Report Type: Report from Study
  Country: GB (occurrence: GB)
  Receive Date: 20150501
  Receipt Date: 20150501
  Transmission Date: 20150821
  Serious: Yes (Death, Other)
  Sender: FDA-Public Use
  Company Number: GB-GLAXOSMITHKLINE-GB2015GSK059254

PATIENT
  Age: 14 Year
  Sex: Male

DRUGS (4)
  1. ABACAVIR [Suspect]
     Active Substance: ABACAVIR
     Indication: HIV INFECTION
  2. EFAVIRENZ [Suspect]
     Active Substance: EFAVIRENZ
     Indication: HIV INFECTION
  3. LAMIVUDINE. [Suspect]
     Active Substance: LAMIVUDINE
     Indication: HIV INFECTION
  4. ZIDOVUDINE. [Suspect]
     Active Substance: ZIDOVUDINE
     Indication: HIV INFECTION

REACTIONS (11)
  - Abdominal pain [Unknown]
  - Diarrhoea [Unknown]
  - Abdominal lymphadenopathy [Unknown]
  - Pyrexia [Unknown]
  - Hepatomegaly [Unknown]
  - Lung infiltration [Unknown]
  - Respiratory disorder [Unknown]
  - Immune reconstitution inflammatory syndrome [Fatal]
  - Mycobacterium avium complex infection [Unknown]
  - Granuloma [Unknown]
  - Pleural effusion [Unknown]
